FAERS Safety Report 4789869-9 (Version None)
Quarter: 2005Q3

REPORT INFORMATION
  Report Type: 
  Country: None (occurrence: None)
  Receive Date: 20050914
  Receipt Date: 20040921
  Transmission Date: 20060218
  Serious: Yes (Disabling)
  Sender: FDA-Public Use
  Company Number: 163-20785-04090564

PATIENT
  Age: 83 Year
  Sex: Female

DRUGS (4)
  1. THALOMID [Suspect]
     Indication: MULTIPLE MYELOMA
     Dosage: SEE IMAGE
     Route: 048
     Dates: start: 20030621
  2. PROCRIT [Concomitant]
  3. BLOOD TRANSFUSIONS (BLOOD AND RELATED PRODUCTS) [Concomitant]
  4. ZOMETA [Concomitant]

REACTIONS (5)
  - ANAEMIA [None]
  - BLOOD IMMUNOGLOBULIN G INCREASED [None]
  - BONE DISORDER [None]
  - BONE PAIN [None]
  - DISEASE PROGRESSION [None]
